FAERS Safety Report 16803879 (Version 1)
Quarter: 2019Q3

REPORT INFORMATION
  Report Type: Spontaneous
  Country: BE (occurrence: BE)
  Receive Date: 20190913
  Receipt Date: 20190913
  Transmission Date: 20191005
  Serious: Yes (Other)
  Sender: FDA-Public Use
  Company Number: BE-TEVA-2019-BE-1105951

PATIENT
  Sex: Male

DRUGS (2)
  1. ISOTEN MINOR [Suspect]
     Active Substance: BISOPROLOL FUMARATE
     Route: 048
  2. TRAMADOL RETARD [Suspect]
     Active Substance: TRAMADOL
     Route: 065

REACTIONS (3)
  - Nausea [Unknown]
  - Vertigo [Unknown]
  - Bradycardia [Unknown]
